FAERS Safety Report 6223711-4 (Version None)
Quarter: 2009Q2

REPORT INFORMATION
  Report Type: 
  Country: None (occurrence: None)
  Receive Date: 20090611
  Receipt Date: 20090306
  Transmission Date: 20091009
  Serious: No
  Sender: FDA-Public Use
  Company Number: US-ABBOTT-08P-163-0491946-00

PATIENT
  Sex: Female
  Weight: 63.56 kg

DRUGS (6)
  1. HUMIRA [Suspect]
     Indication: CROHN'S DISEASE
     Route: 058
     Dates: start: 20081121
  2. PURINTHOL [Concomitant]
     Indication: CROHN'S DISEASE
     Route: 048
  3. CLARITIN [Concomitant]
     Indication: SEASONAL ALLERGY
     Dosage: UNSURE OF STRENGTH
     Route: 048
  4. MULTI-VITAMIN [Concomitant]
     Indication: MEDICAL DIET
     Route: 048
  5. FOSAMAX [Concomitant]
     Indication: OSTEOPENIA
     Route: 048
  6. VITAMIN B-12 [Concomitant]
     Indication: MALABSORPTION
     Route: 058

REACTIONS (1)
  - INJECTION SITE PAIN [None]
